FAERS Safety Report 15230062 (Version 1)
Quarter: 2018Q3

REPORT INFORMATION
  Report Type: Spontaneous
  Country: US (occurrence: US)
  Receive Date: 20180802
  Receipt Date: 20180802
  Transmission Date: 20181010
  Serious: Yes (Other)
  Sender: FDA-Public Use
  Company Number: US-ACCORD-063012

PATIENT
  Age: 70 Year
  Sex: Female
  Weight: 130.63 kg

DRUGS (7)
  1. CYTOXAN [Suspect]
     Active Substance: CYCLOPHOSPHAMIDE
     Indication: BREAST CANCER
     Dosage: NO OF CYCLE: 04??WITH 250 ML NS
     Dates: start: 20150824, end: 20151026
  2. NEULASTA [Concomitant]
     Active Substance: PEGFILGRASTIM
  3. ZANTAC [Concomitant]
     Active Substance: RANITIDINE HYDROCHLORIDE
     Dosage: TAKEN AT HOME
     Route: 048
     Dates: start: 20150824, end: 20151026
  4. DOCETAXEL ACCORD [Suspect]
     Active Substance: DOCETAXEL
     Indication: BREAST CANCER
     Dosage: NO OF CYCLE: 04??WITH 250 ML NS
     Dates: start: 20150824, end: 20151026
  5. DIPHENHYDRAMINE. [Concomitant]
     Active Substance: DIPHENHYDRAMINE
     Dosage: TAKEN AT HOME
     Route: 048
     Dates: start: 20150824, end: 20151026
  6. ALOXI [Concomitant]
     Active Substance: PALONOSETRON HYDROCHLORIDE
     Route: 042
     Dates: start: 20150824, end: 20151026
  7. DEXAMETHASONE. [Concomitant]
     Active Substance: DEXAMETHASONE
     Dosage: TAKEN AT HOME
     Route: 048
     Dates: start: 20150824, end: 20151026

REACTIONS (1)
  - Alopecia [Not Recovered/Not Resolved]

NARRATIVE: CASE EVENT DATE: 20150915
